FAERS Safety Report 4592880-4 (Version None)
Quarter: 2005Q1

REPORT INFORMATION
  Report Type: 
  Country: None (occurrence: None)
  Receive Date: 20050228
  Receipt Date: 20050216
  Transmission Date: 20050727
  Serious: Yes (Hospitalization, Other)
  Sender: FDA-Public Use
  Company Number: PHBS2005DE02569

PATIENT
  Age: 75 Year
  Sex: Male

DRUGS (4)
  1. DECORTIN [Suspect]
     Dosage: UNK, UNK
     Dates: start: 19880101
  2. AZATHIOPRINE [Suspect]
     Indication: RENAL TRANSPLANT
     Dosage: 100 MG/DAY
     Dates: start: 20020501, end: 20020801
  3. MYCOPHENOLATE MOFETIL [Suspect]
     Indication: RENAL TRANSPLANT
     Dosage: 500 MG, BID
     Dates: start: 20020801
  4. CYCLOSPORINE [Suspect]
     Indication: RENAL TRANSPLANT
     Dosage: UNK, UNK
     Route: 065
     Dates: start: 19880101, end: 20020501

REACTIONS (9)
  - CARDIAC FAILURE [None]
  - CORONARY ARTERY DISEASE [None]
  - DIABETES MELLITUS NON-INSULIN-DEPENDENT [None]
  - HAEMOGLOBINAEMIA [None]
  - HEPATITIS B [None]
  - HEPATITIS B DNA ASSAY [None]
  - HEPATITIS B E ANTIGEN [None]
  - HEPATITIS B SURFACE ANTIGEN [None]
  - MYOCLONUS [None]
